FAERS Safety Report 16714171 (Version 1)
Quarter: 2019Q3

REPORT INFORMATION
  Report Type: Report from Study
  Country: DE (occurrence: DE)
  Receive Date: 20190819
  Receipt Date: 20190819
  Transmission Date: 20191004
  Serious: Yes (Hospitalization)
  Sender: FDA-Public Use
  Company Number: DE-BIOGEN-2019BI00701981

PATIENT
  Age: 35 Year
  Sex: Female
  Weight: 46 kg

DRUGS (1)
  1. PLEGRIDY [Suspect]
     Active Substance: PEGINTERFERON BETA-1A
     Indication: MULTIPLE SCLEROSIS
     Route: 050
     Dates: start: 20180406

REACTIONS (5)
  - Anxiety disorder [Recovered/Resolved]
  - Hypertension [Not Recovered/Not Resolved]
  - Serotonin syndrome [Recovered/Resolved]
  - Eating disorder [Recovered/Resolved]
  - Depression [Recovered/Resolved]

NARRATIVE: CASE EVENT DATE: 201811
